FAERS Safety Report 8720570 (Version 2)
Quarter: 2013Q1

REPORT INFORMATION
  Report Type: Spontaneous
  Country: MX (occurrence: MX)
  Receive Date: 20120813
  Receipt Date: 20130318
  Transmission Date: 20140127
  Serious: Yes (Death, Hospitalization, Other)
  Sender: FDA-Public Use
  Company Number: PHHY2010MX86231

PATIENT
  Age: 82 Year
  Sex: Female

DRUGS (9)
  1. EXELON PATCH [Suspect]
     Indication: DEMENTIA ALZHEIMER^S TYPE
     Dosage: 4.6 MG/24 H
     Route: 062
     Dates: start: 20101010
  2. EXELON PATCH [Suspect]
     Dosage: 9.5 MG/24 H
     Route: 062
     Dates: start: 201106
  3. CO-DIOVAN [Suspect]
     Indication: HYPERTENSION
     Dosage: 1 TAB (80 MG) DAILY
     Route: 048
     Dates: start: 201002, end: 20120705
  4. SEROQUEL [Concomitant]
     Indication: DEMENTIA
     Dosage: 300 MG DAILY
     Route: 048
     Dates: start: 201010
  5. ANGIOTROFIN (DILTIAZEM) [Concomitant]
     Indication: HYPERTENSION
     Dosage: 2 TAB (30 MG) DAILY
     Route: 048
     Dates: start: 201010
  6. COUMADINE [Concomitant]
     Indication: HYPERTENSION
     Dosage: 1/2 TAB (5 MG) DAILY
     Route: 048
     Dates: start: 201010
  7. ATEMPERATOR [Concomitant]
     Indication: AGITATION
     Dosage: 1 1/2  TAB (400 MG) DAILY
     Route: 048
     Dates: start: 201010
  8. MELOXICAM [Concomitant]
     Indication: ARTHRALGIA
     Dosage: 1 TAB (15 MG) DAILY
     Route: 048
     Dates: start: 201010
  9. GLYCERYL TRINITRATE [Concomitant]
     Route: 062

REACTIONS (14)
  - Lobar pneumonia [Fatal]
  - Pulmonary congestion [Fatal]
  - Dyspnoea [Fatal]
  - Gastritis erosive [Fatal]
  - Upper gastrointestinal haemorrhage [Fatal]
  - Chronic obstructive pulmonary disease [Fatal]
  - Hypertension [Fatal]
  - Haematemesis [Fatal]
  - Hallucination [Not Recovered/Not Resolved]
  - Abnormal behaviour [Not Recovered/Not Resolved]
  - Erythema [Not Recovered/Not Resolved]
  - Skin irritation [Not Recovered/Not Resolved]
  - Pruritus [Not Recovered/Not Resolved]
  - Malaise [Unknown]
